FAERS Safety Report 7467080-0 (Version None)
Quarter: 2011Q2

REPORT INFORMATION
  Report Type: 
  Country: None (occurrence: None)
  Receive Date: 20110509
  Receipt Date: 20110217
  Transmission Date: 20111010
  Serious: No
  Sender: FDA-Public Use
  Company Number: US-SANOFI-AVENTIS-2011SA011277

PATIENT
  Age: 66 Year
  Sex: Female

DRUGS (8)
  1. LANTUS [Suspect]
     Dosage: DOSE:30 UNIT(S)
     Route: 058
     Dates: start: 20100301
  2. APIDRA [Suspect]
     Dosage: TOOK 0-5 UNITS AS NEEDED.
     Route: 058
     Dates: start: 20100301
  3. APIDRA [Suspect]
     Dosage: SHE HAS TAKEN GREATER THAN 5 UNITS OF INSULIN GLULISINE, TAKES MORE THAN 5 UNITS ANY MORE.
     Route: 058
  4. SOLOSTAR [Suspect]
     Dates: start: 20100301
  5. APIDRA [Suspect]
     Dosage: TOOK 0-5 UNITS AS NEEDED.
     Route: 058
  6. SOLOSTAR [Suspect]
     Dates: start: 20100301
  7. LANTUS [Suspect]
     Dosage: DOSE:30 UNIT(S)
     Route: 058
     Dates: start: 20100301
  8. SOLOSTAR [Suspect]
     Dates: start: 20100301

REACTIONS (3)
  - BLOOD GLUCOSE DECREASED [None]
  - OVERDOSE [None]
  - INJURY ASSOCIATED WITH DEVICE [None]
